FAERS Safety Report 11426011 (Version 1)
Quarter: 2015Q3

REPORT INFORMATION
  Report Type: Spontaneous
  Country: US (occurrence: US)
  Receive Date: 20150821
  Receipt Date: 20150821
  Transmission Date: 20151125
  Serious: No
  Sender: FDA-Public Use
  Company Number: US-ELI_LILLY_AND_COMPANY-US201304006250

PATIENT
  Sex: Female

DRUGS (2)
  1. HUMULIN R [Suspect]
     Active Substance: INSULIN HUMAN
     Indication: TYPE 2 DIABETES MELLITUS
  2. HUMULIN N [Suspect]
     Active Substance: INSULIN HUMAN
     Indication: TYPE 2 DIABETES MELLITUS
     Dosage: UNK

REACTIONS (8)
  - Blood glucose fluctuation [Unknown]
  - Blood glucose decreased [Unknown]
  - Cold sweat [Unknown]
  - Hunger [Unknown]
  - Blood glucose increased [Unknown]
  - Skin hypertrophy [Unknown]
  - Injection site swelling [Unknown]
  - Paranoia [Unknown]
